FAERS Safety Report 7969583-9 (Version None)
Quarter: 2011Q4

REPORT INFORMATION
  Report Type: 
  Country: None (occurrence: None)
  Receive Date: 20111212
  Receipt Date: 20111208
  Transmission Date: 20120403
  Serious: Yes (Hospitalization)
  Sender: FDA-Public Use
  Company Number: US-PFIZER INC-2011300036

PATIENT
  Sex: Male

DRUGS (14)
  1. AMBRISENTAN [Suspect]
     Indication: ANAEMIA
  2. LACTULOSE [Concomitant]
     Dosage: UNK
  3. AMBRISENTAN [Suspect]
     Indication: RENAL FAILURE CHRONIC
  4. AMBRISENTAN [Suspect]
     Indication: MALNUTRITION
  5. THIAMINE [Concomitant]
     Dosage: UNK
  6. PROPRANOLOL [Concomitant]
     Dosage: UNK
  7. SILDENAFIL [Concomitant]
     Dosage: UNK
  8. KLOR-CON [Concomitant]
     Dosage: UNK
  9. SPIRONOLACTONE [Suspect]
     Dosage: UNK
     Route: 048
     Dates: start: 20111004
  10. AMBRISENTAN [Suspect]
     Indication: FLUID OVERLOAD
  11. OMEPRAZOLE [Concomitant]
     Dosage: UNK
  12. AMBRISENTAN [Suspect]
     Indication: PULMONARY HYPERTENSION
     Dosage: UNK
     Route: 048
     Dates: start: 20111002, end: 20111006
  13. RIFAXIMIN [Concomitant]
     Dosage: UNK
  14. ASCORBIC ACID [Concomitant]
     Dosage: UNK

REACTIONS (8)
  - ERYTHEMA [None]
  - FACIAL PAIN [None]
  - DYSPNOEA [None]
  - HEADACHE [None]
  - COUGH [None]
  - SWELLING FACE [None]
  - CONTUSION [None]
  - FLUSHING [None]
